FAERS Safety Report 26146698 (Version 2)
Quarter: 2025Q4

REPORT INFORMATION
  Report Type: Spontaneous
  Country: US (occurrence: US)
  Receive Date: 20251211
  Receipt Date: 20251211
  Transmission Date: 20260117
  Serious: Yes (Other)
  Sender: GILEAD
  Company Number: US-GILEAD-2025-0739954

PATIENT
  Sex: Male

DRUGS (2)
  1. YESCARTA [Suspect]
     Active Substance: AXICABTAGENE CILOLEUCEL
     Indication: Diffuse large B-cell lymphoma
     Dosage: UNK
     Route: 065
  2. ANAKINRA [Concomitant]
     Active Substance: ANAKINRA

REACTIONS (3)
  - Brain oedema [Unknown]
  - Immune effector cell-associated neurotoxicity syndrome [Unknown]
  - Cytokine release syndrome [Unknown]
